FAERS Safety Report 5148721-X (Version None)
Quarter: 2006Q4

REPORT INFORMATION
  Report Type: 
  Country: None (occurrence: None)
  Receive Date: 20061107
  Receipt Date: 20061030
  Transmission Date: 20070319
  Serious: Yes (Hospitalization)
  Sender: FDA-Public Use
  Company Number: TPA2006A01890

PATIENT
  Age: 83 Year
  Sex: Male
  Weight: 56.6996 kg

DRUGS (3)
  1. ACTOS [Suspect]
     Indication: DIABETES MELLITUS NON-INSULIN-DEPENDENT
     Dosage: 30 MG, 1 IN 1 D, PER ORAL
     Route: 048
     Dates: start: 19990101
  2. PRANDIN (DEFLAZACORT) [Concomitant]
  3. LISINOPRIL [Concomitant]

REACTIONS (2)
  - LOCALISED INFECTION [None]
  - TOE AMPUTATION [None]
